FAERS Safety Report 8152803-8 (Version None)
Quarter: 2012Q1

REPORT INFORMATION
  Report Type: 
  Country: None (occurrence: None)
  Receive Date: 20120215
  Receipt Date: 20120131
  Transmission Date: 20120608
  Serious: Yes (Hospitalization)
  Sender: FDA-Public Use
  Company Number: UTC-015096

PATIENT
  Age: 76 Year
  Sex: Female
  Weight: 65.5 kg

DRUGS (3)
  1. REVATIO [Concomitant]
  2. DIURETICS (DIURETICS) [Concomitant]
  3. REMODULIN [Suspect]
     Indication: PULMONARY ARTERIAL HYPERTENSION
     Dosage: 25.92 UG/KG (0.018 UG/KG, 1 IN 1 MIN), INTRAVENOUS
     Route: 042
     Dates: start: 20111206

REACTIONS (6)
  - NAUSEA [None]
  - DIZZINESS [None]
  - TACHYCARDIA PAROXYSMAL [None]
  - VOMITING [None]
  - PALPITATIONS [None]
  - SUPRAVENTRICULAR TACHYCARDIA [None]
